FAERS Safety Report 24758306 (Version 1)
Quarter: 2024Q4

REPORT INFORMATION
  Report Type: Spontaneous
  Country: US (occurrence: US)
  Receive Date: 20241220
  Receipt Date: 20241220
  Transmission Date: 20250115
  Serious: No
  Sender: MISSION PHARMACAL COMPANY
  Company Number: US-Mission Pharmacal Company-2167452

PATIENT
  Age: 31 Year
  Sex: Female

DRUGS (1)
  1. THIOLA EC [Suspect]
     Active Substance: TIOPRONIN
     Indication: Cystinuria
     Dates: start: 20240219

REACTIONS (4)
  - Oedema peripheral [Unknown]
  - Proteinuria [Unknown]
  - Ecchymosis [Unknown]
  - Rash [Unknown]
